FAERS Safety Report 18430615 (Version 1)
Quarter: 2020Q4

REPORT INFORMATION
  Report Type: Report from Study
  Country: EG (occurrence: EG)
  Receive Date: 20201027
  Receipt Date: 20201027
  Transmission Date: 20210114
  Serious: Yes (Other)
  Sender: FDA-Public Use
  Company Number: NVSC2020EG284289

PATIENT
  Age: 32 Year
  Sex: Female

DRUGS (5)
  1. TASIGNA [Suspect]
     Active Substance: NILOTINIB
     Dosage: 4 DF, QD (STOPPED AFTER 6 MONTHS AFYER ITS START DATE)
     Route: 065
     Dates: start: 2018
  2. SPRYCEL [Suspect]
     Active Substance: DASATINIB
     Indication: CHRONIC MYELOID LEUKAEMIA
     Dosage: 2 DF, QD (START DATE 2016/2017, STOP DATE 2018)
     Route: 065
     Dates: end: 2018
  3. GLIVEC [Suspect]
     Active Substance: IMATINIB MESYLATE
     Indication: CHRONIC MYELOID LEUKAEMIA
     Dosage: 100 MG (4 TABS / DAY) (STOP DATE 2014/2015)
     Route: 065
     Dates: start: 2013
  4. GLIVEC [Suspect]
     Active Substance: IMATINIB MESYLATE
     Dosage: UNK (400 MG 1 TAB / DAY THEN 1 TAB OF 400 AND 2 TABS OF 100 MG)
     Route: 065
     Dates: start: 202006
  5. TASIGNA [Suspect]
     Active Substance: NILOTINIB
     Indication: CHRONIC MYELOID LEUKAEMIA
     Dosage: 4 DF, QD (START DATE 2014/ 201, STOP DATE 2016/2017)
     Route: 065

REACTIONS (5)
  - Product dose omission issue [Recovered/Resolved]
  - Polymerase chain reaction positive [Not Recovered/Not Resolved]
  - Plantar fasciitis [Recovering/Resolving]
  - Nausea [Recovered/Resolved]
  - Gout [Recovering/Resolving]

NARRATIVE: CASE EVENT DATE: 2020
